FAERS Safety Report 15336388 (Version 1)
Quarter: 2018Q3

REPORT INFORMATION
  Report Type: Spontaneous
  Country: US (occurrence: US)
  Receive Date: 20180830
  Receipt Date: 20180830
  Transmission Date: 20181010
  Serious: No
  Sender: FDA-Public Use
  Company Number: US-ACTELION-A-US2018-166880

PATIENT
  Age: 33 Year
  Sex: Male

DRUGS (4)
  1. UPTRAVI [Suspect]
     Active Substance: SELEXIPAG
     Dosage: 1200 MCG, BID
     Route: 048
     Dates: start: 20171221
  2. UPTRAVI [Suspect]
     Active Substance: SELEXIPAG
     Indication: PULMONARY ARTERIAL HYPERTENSION
     Dosage: 400 MCG, BID
     Route: 048
  3. OPSUMIT [Suspect]
     Active Substance: MACITENTAN
     Indication: PULMONARY ARTERIAL HYPERTENSION
     Dosage: 10 MG, QD
     Route: 048
     Dates: start: 20180105
  4. ADCIRCA [Concomitant]
     Active Substance: TADALAFIL
     Dosage: 40 MG, QD
     Dates: start: 20180201

REACTIONS (3)
  - Diarrhoea [Unknown]
  - Headache [Unknown]
  - Peripheral swelling [Unknown]
